FAERS Safety Report 9922654 (Version 1)
Quarter: 2014Q1

REPORT INFORMATION
  Report Type: Spontaneous
  Country: IT (occurrence: IT)
  Receive Date: 20140225
  Receipt Date: 20140225
  Transmission Date: 20141002
  Serious: Yes (Hospitalization)
  Sender: FDA-Public Use
  Company Number: IT-ELI_LILLY_AND_COMPANY-IT201402005610

PATIENT
  Age: 67 Year
  Sex: Male

DRUGS (2)
  1. EFIENT [Suspect]
     Indication: CORONARY ANGIOPLASTY
     Dosage: UNK
     Dates: start: 20140215
  2. REOPRO [Concomitant]
     Indication: CORONARY ANGIOPLASTY
     Dosage: UNK
     Dates: start: 20140215

REACTIONS (1)
  - Pneumonia [Recovering/Resolving]
